FAERS Safety Report 7057215-6 (Version None)
Quarter: 2010Q4

REPORT INFORMATION
  Report Type: 
  Country: None (occurrence: None)
  Receive Date: 20101022
  Receipt Date: 20100922
  Transmission Date: 20110411
  Serious: No
  Sender: FDA-Public Use
  Company Number: US-BAYER-201021654BCC

PATIENT
  Age: 78 Year
  Sex: Male
  Weight: 100 kg

DRUGS (4)
  1. ALEVE (CAPLET) [Suspect]
     Indication: BACK PAIN
     Dosage: TOTAL DAILY DOSE: 440 MG  UNIT DOSE: 220 MG
     Route: 048
     Dates: start: 20100101, end: 20100101
  2. ONE-A-DAY MEN'S HEALTH [Concomitant]
     Route: 065
  3. FORMOTEROL FUMARATE [Concomitant]
     Indication: CHRONIC OBSTRUCTIVE PULMONARY DISEASE
     Route: 065
  4. HYTRIN [Concomitant]
     Indication: PROSTATIC DISORDER
     Route: 065

REACTIONS (3)
  - HYPERSENSITIVITY [None]
  - PLATELET COUNT DECREASED [None]
  - STRESS [None]
